FAERS Safety Report 10269580 (Version 4)
Quarter: 2015Q1

REPORT INFORMATION
  Report Type: Report from Study
  Country: JP (occurrence: JP)
  Receive Date: 20140701
  Receipt Date: 20150224
  Transmission Date: 20150720
  Serious: Yes (Death)
  Sender: FDA-Public Use
  Company Number: JP-ROCHE-1425327

PATIENT
  Age: 90 Year
  Sex: Male

DRUGS (10)
  1. NIRENA-L [Concomitant]
     Route: 048
     Dates: end: 20130916
  2. METHOXY POLYETHYLENE GLYCOL-EPOETIN BETA [Suspect]
     Active Substance: PEGZEREPOETIN ALFA
     Indication: NEPHROGENIC ANAEMIA
     Route: 042
     Dates: start: 20130418, end: 20130508
  3. EXFORGE [Concomitant]
     Active Substance: AMLODIPINE BESYLATE\VALSARTAN
     Route: 048
     Dates: end: 20130916
  4. ALLEGRA [Concomitant]
     Active Substance: FEXOFENADINE HYDROCHLORIDE
     Route: 048
     Dates: end: 20130916
  5. ARGAMATE [Concomitant]
     Active Substance: POLYSTYRENE
     Route: 048
     Dates: end: 20130916
  6. ZYLORIC [Concomitant]
     Active Substance: ALLOPURINOL
     Route: 048
     Dates: end: 20130916
  7. OMEPRAZOLE. [Concomitant]
     Active Substance: OMEPRAZOLE
     Route: 048
     Dates: end: 20130916
  8. METHOXY POLYETHYLENE GLYCOL-EPOETIN BETA [Suspect]
     Active Substance: PEGZEREPOETIN ALFA
     Indication: NEPHROGENIC ANAEMIA
     Route: 042
     Dates: start: 20130509, end: 20130915
  9. BUFFERIN A (JAPAN) [Concomitant]
     Route: 048
     Dates: end: 20130916
  10. ISOSORBIDE MONONITRATE. [Concomitant]
     Active Substance: ISOSORBIDE MONONITRATE
     Route: 048
     Dates: end: 20130916

REACTIONS (3)
  - Cardiac failure acute [Fatal]
  - Acute myocardial infarction [Fatal]
  - Loss of consciousness [Fatal]

NARRATIVE: CASE EVENT DATE: 20130915
